FAERS Safety Report 9236176 (Version 1)
Quarter: 2013Q1

REPORT INFORMATION
  Report Type: Spontaneous
  Country: US (occurrence: None)
  Receive Date: 20121031
  Receipt Date: 20121031
  Transmission Date: 20140127
  Serious: No
  Sender: FDA-Public Use
  Company Number: PHEH2012US013640

PATIENT
  Age: 45 Year
  Sex: Male

DRUGS (4)
  1. GILENYA [Suspect]
     Indication: MULTIPLE SCLEROSIS
     Route: 048
     Dates: start: 20111214, end: 20120105
  2. RANITIDINE ( RANITIDINE) [Concomitant]
  3. SIMVASTATIN ( SIMVASTATIN) [Concomitant]
  4. VENLAFAXINE ( VENLAFAXINE) [Concomitant]

REACTIONS (4)
  - Oropharyngeal pain [None]
  - Presbyopia [None]
  - Visual impairment [None]
  - Vision blurred [None]
